FAERS Safety Report 8012818-7 (Version None)
Quarter: 2011Q4

REPORT INFORMATION
  Report Type: 
  Country: None (occurrence: None)
  Receive Date: 20111223
  Receipt Date: 20111215
  Transmission Date: 20120403
  Serious: Yes (Other)
  Sender: FDA-Public Use
  Company Number: CRC-11-316

PATIENT
  Age: 30 Year
  Sex: Male
  Weight: 80.7403 kg

DRUGS (2)
  1. OXCARBAZEPINE [Suspect]
     Indication: CONVULSION
     Dosage: 600 MG 2X/DAY; ORALLY
     Route: 048
     Dates: start: 20070101
  2. OXCARBAZEPINE [Suspect]
     Indication: CONVULSION
     Dosage: 600 MG 2X/DAY; ORALLY
     Route: 048
     Dates: start: 20070101

REACTIONS (4)
  - CONVULSION [None]
  - PRODUCT SUBSTITUTION ISSUE [None]
  - PRODUCT QUALITY ISSUE [None]
  - MEDICATION RESIDUE [None]
